FAERS Safety Report 16826419 (Version 5)
Quarter: 2021Q3

REPORT INFORMATION
  Report Type: Spontaneous
  Country: US (occurrence: US)
  Receive Date: 20190919
  Receipt Date: 20210709
  Transmission Date: 20211014
  Serious: Yes (Hospitalization, Other)
  Sender: FDA-Public Use
  Company Number: US-PFIZER INC-2019262810

PATIENT
  Age: 69 Year
  Sex: Male

DRUGS (2)
  1. LYRICA [Suspect]
     Active Substance: PREGABALIN
     Dosage: 225 MG, 2X/DAY
     Route: 048
  2. LYRICA [Suspect]
     Active Substance: PREGABALIN
     Dosage: 225 MG, 1X/DAY
     Route: 048

REACTIONS (7)
  - Neuropathy peripheral [Unknown]
  - Myocardial infarction [Unknown]
  - Pain [Unknown]
  - Pain in extremity [Unknown]
  - Gallbladder disorder [Unknown]
  - Diabetes mellitus [Unknown]
  - Intentional product misuse [Unknown]
